FAERS Safety Report 6674437-4 (Version None)
Quarter: 2010Q2

REPORT INFORMATION
  Report Type: 
  Country: None (occurrence: None)
  Receive Date: 20100409
  Receipt Date: 20100401
  Transmission Date: 20101027
  Serious: Yes (Other)
  Sender: FDA-Public Use
  Company Number: PHHY2010BR20119

PATIENT
  Sex: Male

DRUGS (2)
  1. EXFORGE [Suspect]
     Dosage: 160/5 MG
  2. ACETYLSALICYLIC ACID [Concomitant]

REACTIONS (2)
  - HYPERTENSION [None]
  - PARAESTHESIA [None]
